FAERS Safety Report 6025903-6 (Version None)
Quarter: 2008Q4

REPORT INFORMATION
  Report Type: 
  Country: None (occurrence: None)
  Receive Date: 20081224
  Receipt Date: 20081215
  Transmission Date: 20090506
  Serious: Yes (Other)
  Sender: FDA-Public Use
  Company Number: CHPA2008US22511

PATIENT
  Age: 92 Year
  Sex: Female
  Weight: 56.7 kg

DRUGS (1)
  1. MAALOX ANTACID QUICKDISLV TABS RS WLDBER (NCH)(CALCIUM CARBONATE) CHEW [Suspect]
     Dosage: ORAL
     Route: 048
     Dates: start: 19780101, end: 20081101

REACTIONS (5)
  - ABDOMINAL DISTENSION [None]
  - ABDOMINAL PAIN UPPER [None]
  - GASTRIC ULCER HAEMORRHAGE [None]
  - INTENTIONAL DRUG MISUSE [None]
  - KNEE ARTHROPLASTY [None]
